FAERS Safety Report 5357889-1 (Version None)
Quarter: 2007Q2

REPORT INFORMATION
  Report Type: 
  Country: None (occurrence: None)
  Receive Date: 20070612
  Receipt Date: 20070529
  Transmission Date: 20071010
  Serious: Yes (Other)
  Sender: FDA-Public Use
  Company Number: 4009

PATIENT
  Age: 35 Year
  Sex: Female

DRUGS (2)
  1. AMNESTEEM [Suspect]
     Dosage: 120 MG, QD, PO
     Route: 048
     Dates: start: 20060804, end: 20070228
  2. BIRTH CONTROL PILLS [Concomitant]

REACTIONS (5)
  - ABORTION SPONTANEOUS [None]
  - DRUG EXPOSURE DURING PREGNANCY [None]
  - MALE CONTRACEPTION [None]
  - PREGNANCY TEST URINE POSITIVE [None]
  - UNINTENDED PREGNANCY [None]
